FAERS Safety Report 5252690-1 (Version None)
Quarter: 2007Q1

REPORT INFORMATION
  Report Type: 
  Country: None (occurrence: None)
  Receive Date: 20070301
  Receipt Date: 20061113
  Transmission Date: 20070707
  Serious: No
  Sender: FDA-Public Use
  Company Number: US-GLAXOSMITHKLINE-A0626884A

PATIENT
  Age: 49 Year
  Sex: Male

DRUGS (4)
  1. LAMICTAL [Suspect]
     Indication: BIPOLAR DISORDER
     Route: 048
     Dates: start: 20060926, end: 20061108
  2. DEPAKOTE [Concomitant]
  3. WELLBUTRIN [Concomitant]
  4. CLONAZEPAM [Concomitant]

REACTIONS (1)
  - MOUTH ULCERATION [None]
